FAERS Safety Report 4423039-9 (Version None)
Quarter: 2004Q3

REPORT INFORMATION
  Report Type: 
  Country: None (occurrence: None)
  Receive Date: 20040811
  Receipt Date: 20040728
  Transmission Date: 20050211
  Serious: Yes (Other)
  Sender: FDA-Public Use
  Company Number: GB-JNJFOC-20040601726

PATIENT
  Age: 50 Year
  Sex: Male
  Weight: 108 kg

DRUGS (7)
  1. RISPERDAL [Suspect]
     Indication: MANIA
     Route: 049
  2. SEMISODIUM VALPROATE [Concomitant]
  3. OMEGA 3 [Concomitant]
  4. THYROXINE [Concomitant]
     Indication: HYPOTHYROIDISM
  5. KETOCONAZOLE [Concomitant]
     Dosage: 1-2 WEEKLY
  6. OXYTETRACYCLINE [Concomitant]
  7. PROCYCLIDINE HYDROCHLORIDE 2MG TAB [Concomitant]

REACTIONS (6)
  - ALANINE AMINOTRANSFERASE INCREASED [None]
  - BLOOD BILIRUBIN INCREASED [None]
  - BLOOD PRESSURE INCREASED [None]
  - CONFUSIONAL STATE [None]
  - DISORIENTATION [None]
  - TRANSIENT ISCHAEMIC ATTACK [None]
